FAERS Safety Report 16740650 (Version 1)
Quarter: 2019Q3

REPORT INFORMATION
  Report Type: Spontaneous
  Country: US (occurrence: US)
  Receive Date: 20190826
  Receipt Date: 20190826
  Transmission Date: 20191005
  Serious: No
  Sender: FDA-Public Use
  Company Number: US-PFIZER INC-2019363845

PATIENT
  Age: 57 Year
  Sex: Female

DRUGS (1)
  1. XELJANZ XR [Suspect]
     Active Substance: TOFACITINIB CITRATE
     Dosage: 11 MG, UNK
     Dates: start: 20180821, end: 20190817

REACTIONS (5)
  - Peripheral swelling [Unknown]
  - Finger deformity [Unknown]
  - Alopecia [Unknown]
  - Acne [Recovered/Resolved]
  - Arthralgia [Unknown]
